FAERS Safety Report 25679906 (Version 1)
Quarter: 2025Q3

REPORT INFORMATION
  Report Type: Spontaneous
  Country: US (occurrence: US)
  Receive Date: 20250814
  Receipt Date: 20250814
  Transmission Date: 20251021
  Serious: No
  Sender: RECKITT BENCKISER
  Company Number: US-PROD-AS2-212756134-20-24-USA-RB-0011758

PATIENT
  Age: 83 Year
  Sex: Female

DRUGS (2)
  1. MUCINEX [Suspect]
     Active Substance: GUAIFENESIN
     Indication: Nasopharyngitis
     Route: 048
     Dates: start: 202409, end: 20240915
  2. MUCINEX [Suspect]
     Active Substance: GUAIFENESIN
     Indication: Cough

REACTIONS (2)
  - Dizziness [Recovered/Resolved]
  - Product use in unapproved indication [Recovered/Resolved]

NARRATIVE: CASE EVENT DATE: 20240914
